FAERS Safety Report 4856503-9 (Version None)
Quarter: 2005Q4

REPORT INFORMATION
  Report Type: 
  Country: None (occurrence: None)
  Receive Date: 20051219
  Receipt Date: 20050223
  Transmission Date: 20060501
  Serious: No
  Sender: FDA-Public Use
  Company Number: US-GLAXOSMITHKLINE-A0546875A

PATIENT
  Age: 28 Year
  Sex: Female

DRUGS (1)
  1. NICODERM CQ [Suspect]
     Dates: start: 20050222

REACTIONS (5)
  - COUGH [None]
  - HEADACHE [None]
  - NASAL CONGESTION [None]
  - SLEEP DISORDER [None]
  - THROAT IRRITATION [None]
